FAERS Safety Report 8064727-5 (Version None)
Quarter: 2012Q1

REPORT INFORMATION
  Report Type: 
  Country: None (occurrence: None)
  Receive Date: 20120123
  Receipt Date: 20120111
  Transmission Date: 20120608
  Serious: Yes (Death, Life-Threatening, Hospitalization)
  Sender: FDA-Public Use
  Company Number: DE-ELI_LILLY_AND_COMPANY-DE201201003325

PATIENT
  Age: 72 Year
  Sex: Female

DRUGS (3)
  1. OXYGEN [Concomitant]
     Dosage: UNK, OTHER
  2. FORTEO [Suspect]
     Indication: OSTEOPOROSIS
     Dosage: UNK, QD
     Route: 058
     Dates: start: 20110701, end: 20111211
  3. CORTISONE ACETATE [Concomitant]

REACTIONS (2)
  - PULMONARY EMBOLISM [None]
  - HOSPITALISATION [None]
